FAERS Safety Report 7753338-4 (Version None)
Quarter: 2011Q3

REPORT INFORMATION
  Report Type: 
  Country: None (occurrence: None)
  Receive Date: 20110915
  Receipt Date: 20110912
  Transmission Date: 20111222
  Serious: Yes (Life-Threatening, Hospitalization)
  Sender: FDA-Public Use
  Company Number: US-B.I. PHARMACEUTICALS,INC./RIDGEFIELD-2011-BP-19101BP

PATIENT
  Age: 80 Year
  Sex: Female

DRUGS (8)
  1. CARDIZEM [Concomitant]
  2. METOPROLOL TARTRATE [Concomitant]
  3. LOVASTATIN [Concomitant]
  4. ASPIRIN [Concomitant]
     Dosage: 81 MG
     Route: 048
  5. SPIRIVA [Concomitant]
  6. IBUPROFEN [Concomitant]
     Route: 048
  7. OMEPRAZOLE [Concomitant]
  8. PRADAXA [Suspect]
     Indication: ATRIAL FIBRILLATION
     Dosage: 300 MG
     Route: 048
     Dates: start: 20110301, end: 20110802

REACTIONS (1)
  - GASTROINTESTINAL HAEMORRHAGE [None]
